FAERS Safety Report 23026217 (Version 2)
Quarter: 2023Q4

REPORT INFORMATION
  Report Type: Spontaneous
  Country: JP (occurrence: JP)
  Receive Date: 20231004
  Receipt Date: 20231017
  Transmission Date: 20240109
  Serious: Yes (Life-Threatening, Hospitalization, Other)
  Sender: FDA-Public Use
  Company Number: JP-MACLEODS PHARMACEUTICALS US LTD-MAC2023043636

PATIENT

DRUGS (3)
  1. AMLODIPINE [Suspect]
     Active Substance: AMLODIPINE BESYLATE
     Indication: Product used for unknown indication
     Dosage: UNK (HIGH DOSE)
     Route: 065
  2. ATENOLOL [Suspect]
     Active Substance: ATENOLOL
     Indication: Product used for unknown indication
     Dosage: UNK (HIGH DOSE)
     Route: 065
  3. ETIZOLAM [Suspect]
     Active Substance: ETIZOLAM
     Indication: Product used for unknown indication
     Dosage: UNK
     Route: 065

REACTIONS (9)
  - Cardiac arrest [Recovered/Resolved]
  - Electrocardiogram J wave [Recovered/Resolved]
  - Acute kidney injury [Unknown]
  - Cardiogenic shock [Recovered/Resolved]
  - Sinus bradycardia [Recovered/Resolved]
  - Septic shock [Unknown]
  - Pneumonia [Unknown]
  - Hypotension [Unknown]
  - Intentional overdose [Recovered/Resolved]
